FAERS Safety Report 14455806 (Version 29)
Quarter: 2024Q4

REPORT INFORMATION
  Report Type: Report from Study
  Country: CA (occurrence: CA)
  Receive Date: 20180130
  Receipt Date: 20241206
  Transmission Date: 20250115
  Serious: Yes (Hospitalization, Other)
  Sender: ROCHE
  Company Number: CA-ROCHE-1110924

PATIENT
  Age: 61 Year
  Sex: Female
  Weight: 42.2 kg

DRUGS (43)
  1. ACTEMRA [Suspect]
     Active Substance: TOCILIZUMAB
     Indication: Rheumatoid arthritis
     Route: 042
     Dates: start: 20120710, end: 20120912
  2. ACTEMRA [Suspect]
     Active Substance: TOCILIZUMAB
     Route: 042
     Dates: start: 20121012, end: 20130404
  3. ACTEMRA [Suspect]
     Active Substance: TOCILIZUMAB
     Route: 042
     Dates: start: 20130514, end: 20130611
  4. ACTEMRA [Suspect]
     Active Substance: TOCILIZUMAB
     Route: 042
     Dates: start: 20130710, end: 20130802
  5. ACTEMRA [Suspect]
     Active Substance: TOCILIZUMAB
     Route: 042
     Dates: start: 20130903, end: 20131105
  6. ACTEMRA [Suspect]
     Active Substance: TOCILIZUMAB
     Route: 042
     Dates: start: 20131203, end: 20140103
  7. ACTEMRA [Suspect]
     Active Substance: TOCILIZUMAB
     Route: 042
     Dates: start: 20140203, end: 20140403
  8. ACTEMRA [Suspect]
     Active Substance: TOCILIZUMAB
     Route: 042
     Dates: start: 20140520, end: 20140528
  9. ACTEMRA [Suspect]
     Active Substance: TOCILIZUMAB
     Route: 042
     Dates: start: 20140714, end: 20231005
  10. ACTEMRA [Suspect]
     Active Substance: TOCILIZUMAB
     Route: 042
     Dates: start: 20140908
  11. ACTEMRA [Suspect]
     Active Substance: TOCILIZUMAB
     Route: 042
     Dates: start: 20141110
  12. ACTEMRA [Suspect]
     Active Substance: TOCILIZUMAB
     Route: 042
     Dates: start: 20140616, end: 20140616
  13. ACTEMRA [Suspect]
     Active Substance: TOCILIZUMAB
     Route: 042
     Dates: start: 20140812
  14. ACTEMRA [Suspect]
     Active Substance: TOCILIZUMAB
     Route: 042
  15. ACTEMRA [Suspect]
     Active Substance: TOCILIZUMAB
     Route: 042
  16. ACTEMRA [Suspect]
     Active Substance: TOCILIZUMAB
     Route: 042
  17. ACTEMRA [Suspect]
     Active Substance: TOCILIZUMAB
     Route: 042
  18. ACTEMRA [Suspect]
     Active Substance: TOCILIZUMAB
     Route: 042
  19. ACTEMRA [Suspect]
     Active Substance: TOCILIZUMAB
     Route: 042
  20. ACTEMRA [Suspect]
     Active Substance: TOCILIZUMAB
     Route: 042
  21. ACTEMRA [Suspect]
     Active Substance: TOCILIZUMAB
     Route: 042
  22. ACTEMRA [Suspect]
     Active Substance: TOCILIZUMAB
     Route: 042
  23. ACTEMRA [Suspect]
     Active Substance: TOCILIZUMAB
     Route: 042
  24. ACTEMRA [Suspect]
     Active Substance: TOCILIZUMAB
     Route: 042
  25. ACTEMRA [Suspect]
     Active Substance: TOCILIZUMAB
     Route: 042
  26. ACTEMRA [Suspect]
     Active Substance: TOCILIZUMAB
     Route: 042
  27. OXYCODONE [Concomitant]
     Active Substance: OXYCODONE
  28. OFLOXACIN [Concomitant]
     Active Substance: OFLOXACIN
  29. ORENCIA [Concomitant]
     Active Substance: ABATACEPT
  30. FLOVENT [Concomitant]
     Active Substance: FLUTICASONE PROPIONATE
  31. VENTOLIN [Concomitant]
     Active Substance: ALBUTEROL SULFATE
  32. VITAMIN C [Concomitant]
     Active Substance: ASCORBIC ACID
  33. FOLIC ACID [Concomitant]
     Active Substance: FOLIC ACID
  34. DIPHENHYDRAMINE HYDROCHLORIDE [Concomitant]
     Active Substance: DIPHENHYDRAMINE HYDROCHLORIDE
     Indication: Premedication
     Route: 048
     Dates: start: 20090226, end: 20100608
  35. ACETAMINOPHEN [Concomitant]
     Active Substance: ACETAMINOPHEN
     Indication: Premedication
     Route: 048
     Dates: start: 20090226, end: 20100608
  36. METHYLPREDNISOLONE [Concomitant]
     Active Substance: METHYLPREDNISOLONE
     Indication: Premedication
     Route: 042
     Dates: start: 20090226, end: 20100608
  37. CELEXA [Concomitant]
     Active Substance: CITALOPRAM HYDROBROMIDE
  38. DIGOXIN [Concomitant]
     Active Substance: DIGOXIN
  39. SOTALOL HYDROCHLORIDE [Concomitant]
     Active Substance: SOTALOL HYDROCHLORIDE
     Dosage: ONGOING
  40. SOTALOL [Concomitant]
     Active Substance: SOTALOL
     Dosage: 80MG TABLET, 120MG BID
  41. KETAMINE [Concomitant]
     Active Substance: KETAMINE
  42. APIXABAN [Concomitant]
     Active Substance: APIXABAN
     Dosage: 5MG TABLET, 1 TABLET(S) BID
  43. RABEPRAZOLE SODIUM [Concomitant]
     Active Substance: RABEPRAZOLE SODIUM
     Dosage: 20MG DAILY X 1 MONTH

REACTIONS (70)
  - Listless [Not Recovered/Not Resolved]
  - Fatigue [Not Recovered/Not Resolved]
  - Peripheral swelling [Not Recovered/Not Resolved]
  - Weight increased [Not Recovered/Not Resolved]
  - Urinary tract infection [Recovered/Resolved]
  - Hypertension [Unknown]
  - Anxiety [Unknown]
  - Hyperaesthesia [Unknown]
  - Stress [Unknown]
  - Pain [Not Recovered/Not Resolved]
  - Blood pressure increased [Unknown]
  - Contusion [Recovered/Resolved]
  - Toothache [Not Recovered/Not Resolved]
  - Arthralgia [Not Recovered/Not Resolved]
  - Weight decreased [Not Recovered/Not Resolved]
  - Influenza [Not Recovered/Not Resolved]
  - Pneumonia viral [Not Recovered/Not Resolved]
  - Neck pain [Unknown]
  - Incorrect dose administered [Unknown]
  - Blood glucose decreased [Unknown]
  - Limb discomfort [Unknown]
  - Vaginal ulceration [Unknown]
  - Herpes zoster [Unknown]
  - Infusion related reaction [Unknown]
  - Tooth disorder [Unknown]
  - Device dislocation [Unknown]
  - Impaired healing [Recovering/Resolving]
  - Ingrowing nail [Unknown]
  - Foot deformity [Unknown]
  - Musculoskeletal stiffness [Not Recovered/Not Resolved]
  - Weight decreased [Unknown]
  - Hypersensitivity [Recovered/Resolved]
  - Inflammation [Unknown]
  - Asthenia [Not Recovered/Not Resolved]
  - Poor venous access [Unknown]
  - Joint stiffness [Not Recovered/Not Resolved]
  - Nausea [Unknown]
  - Chest discomfort [Recovered/Resolved]
  - Blood pressure systolic increased [Unknown]
  - Myalgia [Not Recovered/Not Resolved]
  - Gingival pain [Recovered/Resolved]
  - Cough [Recovering/Resolving]
  - Body temperature increased [Unknown]
  - Discomfort [Unknown]
  - Stress [Unknown]
  - Nasopharyngitis [Not Recovered/Not Resolved]
  - Drug ineffective [Unknown]
  - Joint swelling [Recovering/Resolving]
  - Malaise [Not Recovered/Not Resolved]
  - Rheumatoid arthritis [Unknown]
  - Lower respiratory tract infection [Recovered/Resolved]
  - Rhinorrhoea [Unknown]
  - Musculoskeletal disorder [Unknown]
  - Vessel puncture site discolouration [Unknown]
  - Pain [Unknown]
  - Lung disorder [Unknown]
  - Myocardial infarction [Unknown]
  - Hallucination [Unknown]
  - Asthenia [Unknown]
  - Heart rate decreased [Unknown]
  - Pneumonia [Not Recovered/Not Resolved]
  - Pulmonary mass [Unknown]
  - C-reactive protein increased [Unknown]
  - Atypical mycobacterial infection [Unknown]
  - Bacterial test positive [Unknown]
  - COVID-19 [Unknown]
  - Pulmonary mass [Unknown]
  - Respiratory tract infection [Unknown]
  - Mycobacterium test positive [Unknown]
  - Pseudomonas infection [Unknown]

NARRATIVE: CASE EVENT DATE: 20120814
